FAERS Safety Report 22589020 (Version 1)
Quarter: 2023Q2

REPORT INFORMATION
  Report Type: Spontaneous
  Country: CN (occurrence: CN)
  Receive Date: 20230612
  Receipt Date: 20230612
  Transmission Date: 20230721
  Serious: Yes (Other)
  Sender: FDA-Public Use
  Company Number: CN-PFIZER INC-202300215800

PATIENT
  Age: 78 Year
  Sex: Male

DRUGS (7)
  1. TIGECYCLINE [Suspect]
     Active Substance: TIGECYCLINE
     Indication: Candida infection
     Dosage: 100 MG (FIRST DOSE)
     Route: 041
     Dates: start: 20210825
  2. TIGECYCLINE [Suspect]
     Active Substance: TIGECYCLINE
     Dosage: 50 MG, 2X/DAY
     Route: 041
  3. VORICONAZOLE [Suspect]
     Active Substance: VORICONAZOLE
     Dosage: 400 MG (FIRST DOSE)
     Route: 041
  4. VORICONAZOLE [Suspect]
     Active Substance: VORICONAZOLE
     Dosage: 200 MG, 2X/DAY
     Route: 041
  5. AMIKACIN SULFATE [Concomitant]
     Active Substance: AMIKACIN SULFATE
     Dosage: 0.2 G, 2X/DAY
  6. FOSFOMYCIN SODIUM [Concomitant]
     Active Substance: FOSFOMYCIN SODIUM
     Dosage: 4 G, 3X/DAY
     Route: 041
  7. LEVOFLOXACIN LACTATE [Concomitant]
     Active Substance: LEVOFLOXACIN LACTATE
     Dosage: 0.6 G, 1X/DAY
     Route: 041

REACTIONS (1)
  - Drug-induced liver injury [Unknown]

NARRATIVE: CASE EVENT DATE: 20210903
